FAERS Safety Report 15308184 (Version 1)
Quarter: 2018Q3

REPORT INFORMATION
  Report Type: Spontaneous
  Country: US (occurrence: US)
  Receive Date: 20180822
  Receipt Date: 20180822
  Transmission Date: 20181010
  Serious: Yes (Other)
  Sender: FDA-Public Use
  Company Number: US-PFIZER INC-2018336381

PATIENT
  Sex: Female
  Weight: 63.5 kg

DRUGS (2)
  1. SERTRALINE HCL [Suspect]
     Active Substance: SERTRALINE HYDROCHLORIDE
     Indication: DEPRESSION
  2. SERTRALINE HCL [Suspect]
     Active Substance: SERTRALINE HYDROCHLORIDE
     Indication: SLEEP DISORDER
     Dosage: 25 MG, DAILY (25MG TABLET BY MOUTH (WHICH IS A 50MG TABLET CUT IN HALF) EVERY NIGHT)
     Route: 048
     Dates: end: 20180623

REACTIONS (5)
  - Haemoptysis [Recovered/Resolved]
  - Hypersomnia [Recovered/Resolved]
  - Weight decreased [Not Recovered/Not Resolved]
  - Expired product administered [Unknown]
  - Gastric ulcer [Not Recovered/Not Resolved]

NARRATIVE: CASE EVENT DATE: 2018
